FAERS Safety Report 7865277-9 (Version None)
Quarter: 2011Q4

REPORT INFORMATION
  Report Type: 
  Country: None (occurrence: None)
  Receive Date: 20111028
  Receipt Date: 20101115
  Transmission Date: 20120403
  Serious: No
  Sender: FDA-Public Use
  Company Number: US-GLAXOSMITHKLINE-A0892549A

PATIENT
  Sex: Female

DRUGS (7)
  1. PREVACID [Concomitant]
  2. POTASSIUM [Concomitant]
  3. ATACAND [Concomitant]
  4. LASIX [Concomitant]
  5. ADVAIR DISKUS 100/50 [Suspect]
     Indication: PRODUCT USED FOR UNKNOWN INDICATION
     Dosage: 1PUFF TWICE PER DAY
     Route: 055
     Dates: start: 20080101, end: 20101110
  6. ATENOLOL [Concomitant]
  7. LEVOXYL [Concomitant]

REACTIONS (2)
  - EYE PAIN [None]
  - VISION BLURRED [None]
